FAERS Safety Report 9509701 (Version 2)
Quarter: 2013Q3

REPORT INFORMATION
  Report Type: Spontaneous
  Country: US (occurrence: US)
  Receive Date: 20130909
  Receipt Date: 20130909
  Transmission Date: 20140515
  Serious: Yes (Death)
  Sender: FDA-Public Use
  Company Number: US-BRISTOL-MYERS SQUIBB COMPANY-17170275

PATIENT
  Age: 59 Year
  Sex: Male
  Weight: 130.15 kg

DRUGS (5)
  1. ABILIFY [Suspect]
     Indication: BIPOLAR II DISORDER
     Dosage: OCT2010-UNKN:5MG,NOV2010-APR2011:2.5MG
     Dates: start: 201010, end: 201104
  2. ABILIFY [Suspect]
     Indication: DEPRESSION
     Dosage: OCT2010-UNKN:5MG,NOV2010-APR2011:2.5MG
     Dates: start: 201010, end: 201104
  3. PROZAC [Suspect]
     Indication: DEPRESSION
  4. INVEGA [Suspect]
  5. LITHIUM [Suspect]

REACTIONS (2)
  - Completed suicide [Fatal]
  - Tardive dyskinesia [Not Recovered/Not Resolved]
